FAERS Safety Report 15126255 (Version 1)
Quarter: 2018Q3

REPORT INFORMATION
  Report Type: Spontaneous
  Country: ES (occurrence: ES)
  Receive Date: 20180710
  Receipt Date: 20180710
  Transmission Date: 20181010
  Serious: Yes (Hospitalization)
  Sender: FDA-Public Use
  Company Number: ES-JNJFOC-20180705522

PATIENT
  Age: 95 Year
  Sex: Female

DRUGS (4)
  1. HALOPERIDOL. [Suspect]
     Active Substance: HALOPERIDOL
     Indication: CONDUCT DISORDER
     Route: 048
     Dates: start: 2017
  2. ORFIDAL [Suspect]
     Active Substance: LORAZEPAM
     Indication: DEPRESSION
     Route: 048
     Dates: start: 2017
  3. VALIUM [Suspect]
     Active Substance: DIAZEPAM
     Indication: CONDUCT DISORDER
     Route: 048
     Dates: start: 20170609, end: 20170614
  4. CLOMETHIAZOLE [Suspect]
     Active Substance: CLOMETHIAZOLE
     Indication: CONDUCT DISORDER
     Route: 048
     Dates: start: 2017

REACTIONS (1)
  - Depressed level of consciousness [Recovering/Resolving]

NARRATIVE: CASE EVENT DATE: 20170614
